FAERS Safety Report 6396324-1 (Version None)
Quarter: 2009Q4

REPORT INFORMATION
  Report Type: 
  Country: None (occurrence: None)
  Receive Date: 20091012
  Receipt Date: 20090930
  Transmission Date: 20100525
  Serious: Yes (Hospitalization)
  Sender: FDA-Public Use
  Company Number: ZA-RANBAXY-2009RR-28151

PATIENT
  Age: 9 Year
  Sex: Female
  Weight: 26 kg

DRUGS (9)
  1. STAVUDINE [Suspect]
     Indication: HIV INFECTION
  2. LAMIVUDINE [Suspect]
     Indication: HIV INFECTION
  3. RITONAVIR [Suspect]
     Indication: HIV INFECTION
  4. LOPINAVIR [Suspect]
     Indication: HIV INFECTION
  5. FLUOXETINE [Suspect]
     Indication: DEPRESSION
     Dosage: 5 MG, QD
  6. ISONIAZID [Suspect]
     Indication: TUBERCULOSIS
  7. RIFAMPICIN [Concomitant]
     Indication: TUBERCULOSIS
  8. PYRAZINAMIDE [Concomitant]
     Indication: TUBERCULOSIS
  9. ETHIONAMIDE [Concomitant]
     Indication: TUBERCULOSIS

REACTIONS (3)
  - DELIRIUM [None]
  - DRUG INTERACTION [None]
  - SEROTONIN SYNDROME [None]
